FAERS Safety Report 9770722 (Version 2)
Quarter: 2014Q1

REPORT INFORMATION
  Report Type: Spontaneous
  Country: US (occurrence: US)
  Receive Date: 20131218
  Receipt Date: 20140124
  Transmission Date: 20141002
  Serious: No
  Sender: FDA-Public Use
  Company Number: US-PFIZER INC-2013361571

PATIENT
  Age: 60 Year
  Sex: Female

DRUGS (3)
  1. XELJANZ [Suspect]
     Indication: RHEUMATOID ARTHRITIS
     Dosage: 5 MG, 2X/DAY
     Route: 048
     Dates: start: 20131008
  2. MOTRIN [Suspect]
     Dosage: 800 MG
  3. ICY HOT [Suspect]
     Dosage: UNK

REACTIONS (2)
  - Pain [Unknown]
  - Inflammation [Unknown]
